FAERS Safety Report 11268955 (Version 1)
Quarter: 2015Q3

REPORT INFORMATION
  Report Type: Spontaneous
  Country: US (occurrence: None)
  Receive Date: 20150710
  Receipt Date: 20150710
  Transmission Date: 20151125
  Serious: Yes (Disabling, Other)
  Sender: FDA-Public Use
  Company Number: 2015-11691

PATIENT
  Age: 73 Year
  Sex: Female
  Weight: 99.8 kg

DRUGS (2)
  1. INSULIN [Concomitant]
     Active Substance: INSULIN NOS
  2. EYLEA [Suspect]
     Active Substance: AFLIBERCEPT
     Indication: MACULAR DEGENERATION
     Dates: start: 201506

REACTIONS (3)
  - Intraocular pressure increased [None]
  - Eye swelling [None]
  - Blindness transient [None]

NARRATIVE: CASE EVENT DATE: 201505
